FAERS Safety Report 7467957-6 (Version None)
Quarter: 2011Q2

REPORT INFORMATION
  Report Type: 
  Country: None (occurrence: None)
  Receive Date: 20110509
  Receipt Date: 20110503
  Transmission Date: 20111010
  Serious: Yes (Other)
  Sender: FDA-Public Use
  Company Number: DE-AMGEN-DEUSP2011014069

PATIENT
  Age: 70 Year
  Sex: Female
  Weight: 70 kg

DRUGS (5)
  1. PROLIA [Suspect]
     Indication: OSTEOPOROSIS
     Dosage: UNK
     Route: 058
     Dates: start: 20110223
  2. CYMBALTA [Concomitant]
     Dosage: 50 MG, UNK
  3. ASPIRIN [Concomitant]
     Dosage: 100 MG, UNK
  4. DOXEPIN [Concomitant]
     Dosage: 50 MG, UNK
  5. LOSARTAN [Concomitant]
     Dosage: 50 MG, UNK

REACTIONS (2)
  - BLOOD URINE PRESENT [None]
  - NEPHROLITHIASIS [None]
